FAERS Safety Report 6249874-2 (Version None)
Quarter: 2009Q2

REPORT INFORMATION
  Report Type: 
  Country: None (occurrence: None)
  Receive Date: 20090629
  Receipt Date: 20090617
  Transmission Date: 20091009
  Serious: Yes (Hospitalization, Other)
  Sender: FDA-Public Use
  Company Number: JP-PFIZER INC-2009229675

PATIENT
  Age: 71 Year

DRUGS (6)
  1. CHAMPIX [Suspect]
     Indication: SMOKING CESSATION THERAPY
     Dosage: 1 MG, 2X/DAY
     Route: 048
     Dates: start: 20090218, end: 20090429
  2. RENIVACE [Concomitant]
     Dates: start: 20060101
  3. ARTIST [Concomitant]
     Dates: start: 20060101, end: 20090610
  4. NORVASC [Concomitant]
     Dates: start: 20060101, end: 20090610
  5. MEVALOTIN [Concomitant]
     Dates: start: 20080430, end: 20090610
  6. ITRIZOLE [Concomitant]
     Dosage: UNK
     Dates: start: 20080430

REACTIONS (5)
  - GLUCOSE TOLERANCE INCREASED [None]
  - GLYCOSYLATED HAEMOGLOBIN INCREASED [None]
  - MUSCLE SPASMS [None]
  - THIRST [None]
  - WEIGHT DECREASED [None]
